FAERS Safety Report 22172775 (Version 3)
Quarter: 2023Q2

REPORT INFORMATION
  Report Type: Spontaneous
  Country: US (occurrence: US)
  Receive Date: 20230404
  Receipt Date: 20230612
  Transmission Date: 20230721
  Serious: Yes (Hospitalization, Other)
  Sender: FDA-Public Use
  Company Number: US-PFIZER INC-202300141785

PATIENT
  Age: 60 Year
  Sex: Female
  Weight: 79.819 kg

DRUGS (2)
  1. PREMARIN [Suspect]
     Active Substance: ESTROGENS, CONJUGATED
     Indication: Menopause
     Dosage: UNK, 1X/DAY
  2. MEGESTROL [Suspect]
     Active Substance: MEGESTROL
     Indication: Menopause
     Dosage: UNK, 1X/DAY

REACTIONS (3)
  - Weight increased [Recovered/Resolved]
  - Lung neoplasm malignant [Unknown]
  - Headache [Recovered/Resolved]
